FAERS Safety Report 24576848 (Version 1)
Quarter: 2024Q4

REPORT INFORMATION
  Report Type: Report from Study
  Country: IL (occurrence: IL)
  Receive Date: 20241104
  Receipt Date: 20241104
  Transmission Date: 20250115
  Serious: Yes (Death, Other)
  Sender: TAKEDA
  Company Number: IL-TAKEDA-2024TUS110718

PATIENT
  Age: 67 Year
  Sex: Male

DRUGS (2)
  1. GLASSIA [Suspect]
     Active Substance: .ALPHA.1-PROTEINASE INHIBITOR HUMAN
     Indication: Graft versus host disease
     Dosage: 90 MILLIGRAM/KILOGRAM
     Route: 065
     Dates: start: 202410
  2. GLASSIA [Suspect]
     Active Substance: .ALPHA.1-PROTEINASE INHIBITOR HUMAN
     Indication: Graft versus host disease
     Dosage: 90 MILLIGRAM/KILOGRAM
     Route: 065
     Dates: start: 202410

REACTIONS (2)
  - Graft versus host disease [Fatal]
  - Off label use [Unknown]

NARRATIVE: CASE EVENT DATE: 20241001
